FAERS Safety Report 6723116-3 (Version None)
Quarter: 2010Q2

REPORT INFORMATION
  Report Type: 
  Country: None (occurrence: None)
  Receive Date: 20100513
  Receipt Date: 20100426
  Transmission Date: 20101027
  Serious: Yes (Hospitalization, Other)
  Sender: FDA-Public Use
  Company Number: US-BAYER-200941598NA

PATIENT
  Age: 27 Year
  Sex: Female
  Weight: 132 kg

DRUGS (7)
  1. YAZ [Suspect]
     Indication: CONTRACEPTION
  2. YASMIN [Suspect]
     Indication: DRUG USE FOR UNKNOWN INDICATION
     Route: 048
  3. ZOLOFT [Concomitant]
     Dosage: TOTAL DAILY DOSE: 50 MG
     Route: 048
  4. FLAGYL [Concomitant]
  5. PRILOSEC [Concomitant]
  6. CIPRO [Concomitant]
  7. VICODIN [Concomitant]

REACTIONS (8)
  - ABDOMINAL PAIN [None]
  - ABDOMINAL PAIN UPPER [None]
  - CHILLS [None]
  - CHOLELITHIASIS [None]
  - GALLBLADDER PAIN [None]
  - NAUSEA [None]
  - PYREXIA [None]
  - VOMITING [None]
